FAERS Safety Report 5008647-9 (Version None)
Quarter: 2006Q2

REPORT INFORMATION
  Report Type: 
  Country: None (occurrence: None)
  Receive Date: 20060518
  Receipt Date: 20060505
  Transmission Date: 20061013
  Serious: Yes (Hospitalization, Other)
  Sender: FDA-Public Use
  Company Number: 2005158440

PATIENT
  Age: 70 Year
  Sex: Female

DRUGS (7)
  1. ZYVOX [Suspect]
     Indication: STAPHYLOCOCCAL OSTEOMYELITIS
     Dosage: 1200 MG (600 MG, 2 IN 1 D), INTRAVENOUS
     Route: 042
     Dates: start: 20041112, end: 20041116
  2. VANCOMYCIN [Suspect]
     Indication: STAPHYLOCOCCAL OSTEOMYELITIS
     Dosage: 1500 MG (750 MG, 2 IN 1 D), INTRAVENOUS
     Route: 042
     Dates: start: 20041016, end: 20041111
  3. POTASSIUM (POTASSIUM) [Concomitant]
  4. METOPROLOL SUCCINATE [Concomitant]
  5. FLUCONAZOLE [Concomitant]
  6. HYDROXYZINE [Concomitant]
  7. DYAZIDE [Concomitant]

REACTIONS (3)
  - NAUSEA [None]
  - RENAL FAILURE [None]
  - STEVENS-JOHNSON SYNDROME [None]
